FAERS Safety Report 7313287-2 (Version None)
Quarter: 2011Q1

REPORT INFORMATION
  Report Type: 
  Country: None (occurrence: None)
  Receive Date: 20110217
  Receipt Date: 20110217
  Transmission Date: 20110831
  Serious: Yes (Life-Threatening, Disabling, Other)
  Sender: FDA-Public Use
  Company Number: None

PATIENT
  Age: 53 Year
  Sex: Male
  Weight: 106.5953 kg

DRUGS (1)
  1. LISINOPRIL [Suspect]
     Indication: HYPERTENSION
     Dosage: 1 PER 24 HR PERIOD
     Dates: start: 20110101, end: 20110201

REACTIONS (7)
  - SEPTIC SHOCK [None]
  - CARDIAC DISORDER [None]
  - PALLOR [None]
  - ASTHENIA [None]
  - ANGINA PECTORIS [None]
  - RENAL DISORDER [None]
  - PARALYSIS [None]
